FAERS Safety Report 22376026 (Version 1)
Quarter: 2023Q2

REPORT INFORMATION
  Report Type: Spontaneous
  Country: CN (occurrence: CN)
  Receive Date: 20230527
  Receipt Date: 20230527
  Transmission Date: 20230721
  Serious: Yes (Life-Threatening, Hospitalization, Other)
  Sender: FDA-Public Use
  Company Number: CN-MLMSERVICE-20230515-4285556-1

PATIENT
  Age: 25 Year
  Sex: Female

DRUGS (3)
  1. MYCOPHENOLATE MOFETIL [Suspect]
     Active Substance: MYCOPHENOLATE MOFETIL
     Indication: Immunosuppressant drug therapy
  2. TACROLIMUS [Suspect]
     Active Substance: TACROLIMUS
     Indication: Immunosuppressant drug therapy
  3. BASILIXIMAB [Suspect]
     Active Substance: BASILIXIMAB
     Indication: Immunosuppressant drug therapy

REACTIONS (8)
  - Proteus infection [Recovered/Resolved]
  - Complications of transplanted kidney [Recovered/Resolved]
  - Renal abscess [Recovered/Resolved]
  - Urinary tract infection [Recovered/Resolved]
  - Respiratory distress [Recovered/Resolved]
  - Escherichia infection [Recovered/Resolved]
  - Septic shock [Recovered/Resolved]
  - Pulmonary oedema [Recovered/Resolved]
